FAERS Safety Report 16786571 (Version 1)
Quarter: 2019Q3

REPORT INFORMATION
  Report Type: Spontaneous
  Country: US (occurrence: US)
  Receive Date: 20190909
  Receipt Date: 20190909
  Transmission Date: 20191005
  Serious: Yes (Life-Threatening, Hospitalization, Other)
  Sender: FDA-Public Use
  Company Number: US-MYLANLABS-2019M1082861

PATIENT
  Age: 32 Year
  Sex: Female
  Weight: 54.4 kg

DRUGS (3)
  1. LORAZEPAM. [Suspect]
     Active Substance: LORAZEPAM
     Indication: SEIZURE
     Route: 042
  2. PROPOFOL. [Suspect]
     Active Substance: PROPOFOL
     Indication: SEIZURE
     Route: 042
  3. BUPIVACAINE. [Suspect]
     Active Substance: BUPIVACAINE
     Indication: NERVE BLOCK
     Route: 050

REACTIONS (6)
  - Pulseless electrical activity [Recovering/Resolving]
  - Unresponsive to stimuli [Recovering/Resolving]
  - Cyanosis [Recovering/Resolving]
  - Wrong technique in product usage process [Recovering/Resolving]
  - Drug ineffective [Recovering/Resolving]
  - Seizure [Recovering/Resolving]
